FAERS Safety Report 6201730-1 (Version None)
Quarter: 2009Q2

REPORT INFORMATION
  Report Type: 
  Country: None (occurrence: None)
  Receive Date: 20090526
  Receipt Date: 20090514
  Transmission Date: 20091009
  Serious: Yes (Hospitalization, Other)
  Sender: FDA-Public Use
  Company Number: ES-AMGEN-UK346990

PATIENT
  Age: 82 Year
  Sex: Male

DRUGS (2)
  1. VECTIBIX [Suspect]
     Indication: COLORECTAL CANCER
     Route: 065
     Dates: start: 20090211
  2. MEGESTROL ACETATE [Suspect]
     Route: 065
     Dates: start: 20090101

REACTIONS (1)
  - INTRACRANIAL VENOUS SINUS THROMBOSIS [None]
